FAERS Safety Report 17795103 (Version 2)
Quarter: 2020Q2

REPORT INFORMATION
  Report Type: Spontaneous
  Country: JP (occurrence: JP)
  Receive Date: 20200515
  Receipt Date: 20200527
  Transmission Date: 20200714
  Serious: Yes (Other)
  Sender: FDA-Public Use
  Company Number: NVSJ2020JP005053

PATIENT
  Age: 72 Year
  Sex: Male

DRUGS (1)
  1. ZOMETA [Suspect]
     Active Substance: ZOLEDRONIC ACID
     Indication: METASTASES TO BONE
     Dosage: UNK
     Route: 041

REACTIONS (6)
  - Loose tooth [Unknown]
  - Tooth disorder [Unknown]
  - Osteonecrosis of jaw [Unknown]
  - Tooth abscess [Unknown]
  - Toothache [Unknown]
  - Exposed bone in jaw [Unknown]
